FAERS Safety Report 7205554-8 (Version None)
Quarter: 2010Q4

REPORT INFORMATION
  Report Type: 
  Country: None (occurrence: None)
  Receive Date: 20101231
  Receipt Date: 20101221
  Transmission Date: 20110411
  Serious: Yes (Hospitalization)
  Sender: FDA-Public Use
  Company Number: PHHY2010CH86979

PATIENT
  Age: 56 Year
  Sex: Male

DRUGS (4)
  1. TRILEPTAL [Suspect]
     Indication: EPILEPSY
     Dosage: 2100 MG/D
     Dates: end: 20100801
  2. SERLAIN [Suspect]
     Dosage: 50 MG, QD
     Dates: end: 20100801
  3. RISPERIDONE [Suspect]
     Dosage: 0.5 MG, QD
  4. LAMOTRIGINE [Concomitant]
     Dosage: UNK

REACTIONS (6)
  - ABDOMINAL PAIN [None]
  - ATAXIA [None]
  - HEADACHE [None]
  - HYPONATRAEMIA [None]
  - INAPPROPRIATE ANTIDIURETIC HORMONE SECRETION [None]
  - NAUSEA [None]
